FAERS Safety Report 10227982 (Version 1)
Quarter: 2014Q2

REPORT INFORMATION
  Report Type: Spontaneous
  Country: US (occurrence: None)
  Receive Date: 20140609
  Receipt Date: 20140609
  Transmission Date: 20141212
  Serious: No
  Sender: FDA-Public Use
  Company Number: None

PATIENT
  Age: 21 Year
  Sex: Female
  Weight: 65.77 kg

DRUGS (1)
  1. VITAMIN D [Suspect]
     Indication: VITAMIN D DECREASED
     Dosage: 2 CAPSULES WEEKLY TWICE A WEEK TAKEN BY MOUTH
     Route: 048
     Dates: start: 20140512, end: 20140605

REACTIONS (10)
  - Memory impairment [None]
  - Bone pain [None]
  - Back pain [None]
  - Nausea [None]
  - Decreased appetite [None]
  - Vomiting [None]
  - Fatigue [None]
  - Polymenorrhoea [None]
  - Pollakiuria [None]
  - Pain in extremity [None]
